FAERS Safety Report 22026541 (Version 1)
Quarter: 2023Q1

REPORT INFORMATION
  Report Type: Spontaneous
  Country: US (occurrence: None)
  Receive Date: 20230223
  Receipt Date: 20230223
  Transmission Date: 20230418
  Serious: No
  Sender: FDA-Public Use
  Company Number: US-ROCHE-3174110

PATIENT
  Sex: Female

DRUGS (9)
  1. XOLAIR [Suspect]
     Active Substance: OMALIZUMAB
     Indication: Bronchiectasis
     Dosage: ONGOING
     Route: 058
     Dates: start: 202208
  2. XOLAIR [Suspect]
     Active Substance: OMALIZUMAB
  3. XOLAIR [Suspect]
     Active Substance: OMALIZUMAB
  4. XOLAIR [Suspect]
     Active Substance: OMALIZUMAB
     Indication: Bronchopulmonary aspergillosis allergic
     Dosage: ONGOING
     Route: 058
     Dates: start: 202208
  5. XOLAIR [Suspect]
     Active Substance: OMALIZUMAB
  6. XOLAIR [Suspect]
     Active Substance: OMALIZUMAB
  7. XOLAIR [Suspect]
     Active Substance: OMALIZUMAB
     Indication: Asthma
  8. XOLAIR [Suspect]
     Active Substance: OMALIZUMAB
  9. XOLAIR [Suspect]
     Active Substance: OMALIZUMAB

REACTIONS (2)
  - Fatigue [Unknown]
  - Asthenia [Unknown]
